FAERS Safety Report 6175555-X (Version None)
Quarter: 2009Q2

REPORT INFORMATION
  Report Type: 
  Country: None (occurrence: None)
  Receive Date: 20090501
  Receipt Date: 20090420
  Transmission Date: 20091009
  Serious: Yes (Other)
  Sender: FDA-Public Use
  Company Number: ES-JNJFOC-20090405248

PATIENT
  Age: 29 Year
  Sex: Male

DRUGS (1)
  1. FRENADOL PS [Suspect]
     Indication: NASOPHARYNGITIS
     Route: 048

REACTIONS (5)
  - AGITATION [None]
  - CHILLS [None]
  - DIZZINESS [None]
  - HYPERTENSIVE CRISIS [None]
  - TACHYCARDIA [None]
